FAERS Safety Report 23405724 (Version 1)
Quarter: 2024Q1

REPORT INFORMATION
  Report Type: Spontaneous
  Country: US (occurrence: US)
  Receive Date: 20240116
  Receipt Date: 20240116
  Transmission Date: 20240410
  Serious: No
  Sender: FDA-Public Use
  Company Number: US-ANIPHARMA-2023-US-006297

PATIENT
  Age: 24 Year
  Sex: Female

DRUGS (6)
  1. REGLAN [Suspect]
     Active Substance: METOCLOPRAMIDE HYDROCHLORIDE
     Indication: Headache
     Dosage: THREE TIMES DAILY BY MOUTH FOR 5 DAYS
  2. AIMOVIG [Suspect]
     Active Substance: ERENUMAB-AOOE
     Indication: Migraine
     Dosage: 140MG MONTHLY INJECTIONS
     Route: 065
  3. NURTEC ODT [Suspect]
     Active Substance: RIMEGEPANT SULFATE
     Indication: Migraine
     Dosage: AS NEEDED
     Route: 065
  4. MAGNESIUM [Suspect]
     Active Substance: MAGNESIUM
     Indication: Migraine
     Dosage: 400 MG
  5. TORADOL [Suspect]
     Active Substance: KETOROLAC TROMETHAMINE
     Indication: Headache
     Dosage: TID FOR 5 DAYS
     Route: 065
  6. BENADRYL [Suspect]
     Active Substance: DIPHENHYDRAMINE HYDROCHLORIDE
     Indication: Headache
     Dosage: TID FOR 5 DAYS
     Route: 065

REACTIONS (2)
  - Off label use [Recovered/Resolved]
  - Therapeutic response unexpected [Recovered/Resolved]
